FAERS Safety Report 7498412-5 (Version None)
Quarter: 2011Q2

REPORT INFORMATION
  Report Type: 
  Country: None (occurrence: None)
  Receive Date: 20110524
  Receipt Date: 20110511
  Transmission Date: 20111010
  Serious: No
  Sender: FDA-Public Use
  Company Number: US-BIOGENIDEC-2011BI018326

PATIENT
  Sex: Female

DRUGS (5)
  1. AVONEX [Suspect]
     Route: 030
     Dates: start: 20070501, end: 20070903
  2. AVONEX [Suspect]
     Route: 030
     Dates: start: 20080108, end: 20090801
  3. AVONEX [Suspect]
     Route: 030
     Dates: start: 19970812, end: 19990224
  4. AVONEX [Suspect]
     Indication: MULTIPLE SCLEROSIS
     Route: 030
     Dates: start: 20090829
  5. AVONEX [Suspect]
     Route: 030
     Dates: start: 20000810, end: 20010214

REACTIONS (8)
  - HYPERTENSION [None]
  - INFLUENZA LIKE ILLNESS [None]
  - INJECTION SITE PAIN [None]
  - MUSCULAR WEAKNESS [None]
  - CONTUSION [None]
  - MOTOR DYSFUNCTION [None]
  - HYPOAESTHESIA [None]
  - DERMATITIS CONTACT [None]
